FAERS Safety Report 5495884-2 (Version None)
Quarter: 2007Q4

REPORT INFORMATION
  Report Type: 
  Country: None (occurrence: None)
  Receive Date: 20071025
  Receipt Date: 20061107
  Transmission Date: 20080405
  Serious: No
  Sender: FDA-Public Use
  Company Number: A0626556A

PATIENT
  Sex: Female

DRUGS (19)
  1. ADVAIR DISKUS 100/50 [Suspect]
     Indication: ASTHMA
     Dosage: 1PUFF TWICE PER DAY
     Route: 055
     Dates: start: 20020101
  2. ALLEGRA D 24 HOUR [Concomitant]
  3. FLONASE [Concomitant]
  4. XOLAIR [Concomitant]
  5. SINGULAIR [Concomitant]
  6. COMBIVENT [Concomitant]
  7. PREDNISONE [Concomitant]
  8. QVAR 40 [Concomitant]
  9. NYSTATIN [Concomitant]
  10. PREMARIN [Concomitant]
  11. PREVACID [Concomitant]
  12. FOSAMAX [Concomitant]
  13. LASIX [Concomitant]
  14. POTASSIUM CHLORIDE [Concomitant]
  15. VASOTEC [Concomitant]
  16. MULTI-VITAMIN [Concomitant]
  17. ASPIRIN [Concomitant]
  18. TUMS [Concomitant]
  19. XOPENEX [Concomitant]

REACTIONS (1)
  - TREMOR [None]
